FAERS Safety Report 10561329 (Version 1)
Quarter: 2014Q4

REPORT INFORMATION
  Report Type: Spontaneous
  Country: CN (occurrence: CN)
  Receive Date: 20141103
  Receipt Date: 20141103
  Transmission Date: 20150529
  Serious: Yes (Hospitalization)
  Sender: FDA-Public Use
  Company Number: PHHY2014CN141718

PATIENT
  Age: 50 Year
  Sex: Male

DRUGS (2)
  1. DICLOFENAC [Suspect]
     Active Substance: DICLOFENAC
     Indication: ANALGESIC THERAPY
  2. DICLOFENAC [Suspect]
     Active Substance: DICLOFENAC
     Indication: ANTIINFLAMMATORY THERAPY
     Dosage: 75 MG, QD
     Route: 048
     Dates: start: 20120621, end: 20120909

REACTIONS (13)
  - Arthralgia [Recovering/Resolving]
  - Faecal volume decreased [Recovering/Resolving]
  - Decreased appetite [Recovering/Resolving]
  - Erythema [Recovering/Resolving]
  - Abdominal pain [Recovering/Resolving]
  - Renal impairment [Recovering/Resolving]
  - Splenomegaly [Recovering/Resolving]
  - Diarrhoea [Recovering/Resolving]
  - Oedema [Recovering/Resolving]
  - Henoch-Schonlein purpura [Recovering/Resolving]
  - Henoch-Schonlein purpura nephritis [Recovering/Resolving]
  - Rash pruritic [Recovering/Resolving]
  - Pyrexia [Recovering/Resolving]

NARRATIVE: CASE EVENT DATE: 20120908
